FAERS Safety Report 8177959-2 (Version None)
Quarter: 2012Q1

REPORT INFORMATION
  Report Type: 
  Country: None (occurrence: None)
  Receive Date: 20120301
  Receipt Date: 20120223
  Transmission Date: 20120608
  Serious: Yes (Death, Other)
  Sender: FDA-Public Use
  Company Number: US-CELGENEUS-163-21880-12013269

PATIENT
  Sex: Male

DRUGS (12)
  1. COUMADIN [Concomitant]
     Dosage: 5 MILLIGRAM
     Route: 065
  2. SIMVASTATIN [Concomitant]
     Dosage: 40 MILLIGRAM
     Route: 065
  3. SPIRONOLACTONE [Concomitant]
     Dosage: 25 MILLIGRAM
     Route: 065
  4. COLACE [Concomitant]
     Dosage: 100 MILLIGRAM
     Route: 065
  5. MIRALAX [Concomitant]
     Route: 065
  6. FOSAMAX [Concomitant]
     Dosage: 10 MILLIGRAM
     Route: 065
  7. VITAMIN B6 [Concomitant]
     Dosage: 250 MILLIGRAM
     Route: 065
  8. REVLIMID [Suspect]
     Indication: MULTIPLE MYELOMA
     Dosage: 10 MILLIGRAM
     Route: 048
     Dates: start: 20070323
  9. ASPIRIN [Concomitant]
     Dosage: 81 MILLIGRAM
     Route: 048
  10. EYE VITAMINS [Concomitant]
     Route: 065
  11. LASIX [Concomitant]
     Dosage: 20 MILLIGRAM
     Route: 065
  12. CALCIUM [Concomitant]
     Dosage: 500 MILLIGRAM
     Route: 065

REACTIONS (2)
  - CARDIAC FAILURE CONGESTIVE [None]
  - ACUTE MYOCARDIAL INFARCTION [None]
